FAERS Safety Report 6736877-4 (Version None)
Quarter: 2010Q2

REPORT INFORMATION
  Report Type: 
  Country: None (occurrence: None)
  Receive Date: 20100521
  Receipt Date: 20100512
  Transmission Date: 20101027
  Serious: Yes (Other)
  Sender: FDA-Public Use
  Company Number: CA-CELGENEUS-028-21880-10051065

PATIENT
  Sex: Female
  Weight: 77.4 kg

DRUGS (1)
  1. REVLIMID [Suspect]
     Indication: MULTIPLE MYELOMA
     Route: 048
     Dates: start: 20100414

REACTIONS (2)
  - HEART RATE IRREGULAR [None]
  - VISUAL IMPAIRMENT [None]
